FAERS Safety Report 5091199-5 (Version None)
Quarter: 2006Q3

REPORT INFORMATION
  Report Type: 
  Country: None (occurrence: None)
  Receive Date: 20060829
  Receipt Date: 20060816
  Transmission Date: 20061208
  Serious: Yes (Other)
  Sender: FDA-Public Use
  Company Number: PHBS2006BR12447

PATIENT
  Age: 50 Year
  Sex: Female

DRUGS (2)
  1. ZOMETA [Suspect]
     Indication: BREAST CANCER METASTATIC
     Dosage: 4 MG, QMO
     Route: 042
  2. CHEMOTHERAPEUTICS,OTHER [Concomitant]
     Route: 065

REACTIONS (1)
  - OSTEONECROSIS [None]
